FAERS Safety Report 4724344-9 (Version None)
Quarter: 2005Q3

REPORT INFORMATION
  Report Type: 
  Country: None (occurrence: None)
  Receive Date: 20050722
  Receipt Date: 20050708
  Transmission Date: 20060218
  Serious: Yes (Hospitalization)
  Sender: FDA-Public Use
  Company Number: 2005-0008526

PATIENT
  Age: 45 Year
  Sex: Female

DRUGS (6)
  1. VIREAD [Suspect]
     Dosage: 300 MG, 1 IN 1 D, ORAL
     Route: 048
     Dates: start: 20050308
  2. NORVIR [Suspect]
     Dosage: 2 DOSAGE FORMS, 1 IN 1 D, ORAL
     Route: 048
     Dates: start: 20050308
  3. ZERIT [Suspect]
     Dosage: 2 DOSAGE FORMS, 1 IN 1 D, ORAL
     Route: 048
     Dates: start: 20050308
  4. TELZIR (FOSAMPRENAVIR) [Suspect]
     Dosage: 2 DOSAGE FORMS, 1 IN 1 D, ORAL
     Route: 048
     Dates: start: 20050308
  5. VALPROATE SODIUM [Suspect]
     Dosage: 300 MG, 2 IN 1 D, ORAL
     Route: 048
     Dates: start: 20050308
  6. EFFEXOR [Suspect]
     Dosage: 37.5 MG, 2 IN 1 D, ORAL
     Route: 048
     Dates: start: 20050308

REACTIONS (3)
  - ANGIONEUROTIC OEDEMA [None]
  - DYSPNOEA [None]
  - URTICARIA [None]
